FAERS Safety Report 17987325 (Version 1)
Quarter: 2020Q3

REPORT INFORMATION
  Report Type: Spontaneous
  Country: US (occurrence: US)
  Receive Date: 20200707
  Receipt Date: 20200707
  Transmission Date: 20201103
  Serious: No
  Sender: FDA-Public Use
  Company Number: US-TEVA-2020-US-1789974

PATIENT

DRUGS (1)
  1. CINQAIR [Suspect]
     Active Substance: RESLIZUMAB
     Route: 042

REACTIONS (2)
  - Hypersensitivity [Unknown]
  - Rash [Unknown]
